FAERS Safety Report 10177796 (Version 1)
Quarter: 2014Q2

REPORT INFORMATION
  Report Type: Spontaneous
  Country: US (occurrence: US)
  Receive Date: 20140516
  Receipt Date: 20140516
  Transmission Date: 20141212
  Serious: No
  Sender: FDA-Public Use
  Company Number: US-SANOFI-AVENTIS-2013SA093805

PATIENT
  Sex: Female

DRUGS (3)
  1. APIDRA [Suspect]
  2. LANTUS [Suspect]
  3. LEVEMIR FLEXPEN [Suspect]

REACTIONS (2)
  - Injection site reaction [Unknown]
  - Blood glucose increased [Unknown]
